FAERS Safety Report 8988361 (Version 1)
Quarter: 2012Q4

REPORT INFORMATION
  Report Type: Spontaneous
  Country: US (occurrence: None)
  Receive Date: 20121220
  Receipt Date: 20121220
  Transmission Date: 20130627
  Serious: Yes (Other)
  Sender: FDA-Public Use
  Company Number: None

PATIENT
  Age: 66 Year
  Sex: Female
  Weight: 90.72 kg

DRUGS (1)
  1. ATORVASTATIN 20MG RANBAXY [Suspect]
     Indication: HIGH CHOLESTEROL
     Dosage: 20mg once a day po
at least 6 months
     Route: 048

REACTIONS (1)
  - Dyspepsia [None]
